FAERS Safety Report 24803717 (Version 1)
Quarter: 2025Q1

REPORT INFORMATION
  Report Type: Spontaneous
  Country: PT (occurrence: PT)
  Receive Date: 20250103
  Receipt Date: 20250103
  Transmission Date: 20250409
  Serious: Yes (Hospitalization, Other)
  Sender: RANBAXY
  Company Number: PT-SUN PHARMACEUTICAL INDUSTRIES LTD-2024R1-487383

PATIENT
  Age: 18 Year
  Sex: Female

DRUGS (2)
  1. DOXYCYCLINE [Suspect]
     Active Substance: DOXYCYCLINE
     Indication: Malaria
     Route: 065
  2. QUININE [Suspect]
     Active Substance: QUININE
     Indication: Malaria
     Route: 042

REACTIONS (1)
  - Condition aggravated [Unknown]
